FAERS Safety Report 10776060 (Version 1)
Quarter: 2015Q1

REPORT INFORMATION
  Report Type: Other
  Country: US (occurrence: US)
  Receive Date: 20150209
  Receipt Date: 20150209
  Transmission Date: 20150721
  Serious: Yes (Death)
  Sender: FDA-Public Use
  Company Number: US-FRI-1000074300

PATIENT
  Age: 30 Year
  Sex: Male

DRUGS (3)
  1. LIMONENE [Suspect]
     Active Substance: LIMONENE
  2. METHADONE [Suspect]
     Active Substance: METHADONE HYDROCHLORIDE
  3. CITALOPRAM [Suspect]
     Active Substance: CITALOPRAM HYDROBROMIDE

REACTIONS (2)
  - Cardio-respiratory arrest [Fatal]
  - Death [Fatal]
